FAERS Safety Report 17252912 (Version 1)
Quarter: 2020Q1

REPORT INFORMATION
  Report Type: Spontaneous
  Country: FR (occurrence: FR)
  Receive Date: 20200109
  Receipt Date: 20200109
  Transmission Date: 20200409
  Serious: Yes (Hospitalization)
  Sender: FDA-Public Use
  Company Number: FR-CELGENEUS-FRA-20200101594

PATIENT
  Age: 63 Year
  Sex: Male
  Weight: 65 kg

DRUGS (5)
  1. ONDANSETRON ACCORD [Concomitant]
     Active Substance: ONDANSETRON
     Indication: PREMEDICATION
     Route: 042
     Dates: start: 20191004, end: 20191004
  2. POLARAMINE [Concomitant]
     Active Substance: DEXCHLORPHENIRAMINE MALEATE
     Indication: PREMEDICATION
     Route: 042
     Dates: start: 20191004, end: 20191004
  3. ABRAXANE [Suspect]
     Active Substance: PACLITAXEL
     Indication: OROPHARYNGEAL SQUAMOUS CELL CARCINOMA
     Route: 041
     Dates: start: 20191004, end: 20191004
  4. METHYLPREDNISOLONE MYLAN [Concomitant]
     Active Substance: METHYLPREDNISOLONE
     Indication: PREMEDICATION
     Route: 042
     Dates: start: 20191004, end: 20191004
  5. AZANTAC [Concomitant]
     Active Substance: RANITIDINE HYDROCHLORIDE
     Indication: PREMEDICATION
     Route: 042
     Dates: start: 20191004, end: 20191004

REACTIONS (2)
  - Sense of oppression [Recovered/Resolved]
  - Hypertension [Recovered/Resolved]

NARRATIVE: CASE EVENT DATE: 20191004
